FAERS Safety Report 15305715 (Version 2)
Quarter: 2018Q3

REPORT INFORMATION
  Report Type: Report from Study
  Country: FR (occurrence: FR)
  Receive Date: 20180822
  Receipt Date: 20180907
  Transmission Date: 20181010
  Serious: Yes (Other)
  Sender: FDA-Public Use
  Company Number: FR-BRISTOL-MYERS SQUIBB COMPANY-BMS-2018-077387

PATIENT
  Age: 36 Year
  Sex: Female
  Weight: 78 kg

DRUGS (4)
  1. DOLIPRANE [Suspect]
     Active Substance: ACETAMINOPHEN
     Indication: ANALGESIC THERAPY
     Dosage: 1000 MG, UNK
     Route: 065
  2. SIMPONI [Suspect]
     Active Substance: GOLIMUMAB
     Indication: ANKYLOSING SPONDYLITIS
     Dosage: 50 MG, QMO
     Route: 058
     Dates: start: 20150717, end: 20170117
  3. OPTIMIZETTE [Concomitant]
     Active Substance: DESOGESTREL
     Indication: CONTRACEPTION
     Dosage: 1 G, UNK
     Route: 065
     Dates: start: 201601
  4. METFORMIN HYDROCHLORIDE. [Suspect]
     Active Substance: METFORMIN HYDROCHLORIDE
     Indication: TYPE 2 DIABETES MELLITUS
     Dosage: 1 G, UNK
     Route: 048

REACTIONS (2)
  - Hepatocellular injury [Unknown]
  - Cholestasis [Unknown]

NARRATIVE: CASE EVENT DATE: 201701
